FAERS Safety Report 26087937 (Version 1)
Quarter: 2025Q4

REPORT INFORMATION
  Report Type: Spontaneous
  Country: EU (occurrence: EU)
  Receive Date: 20251125
  Receipt Date: 20251125
  Transmission Date: 20260118
  Serious: Yes (Other)
  Sender: CHEPLAPHARM
  Company Number: None

PATIENT
  Age: 30 Year
  Sex: Male
  Weight: 86 kg

DRUGS (9)
  1. QUETIAPINE [Suspect]
     Active Substance: QUETIAPINE
     Indication: Mental disorder
     Dosage: 2 AT BEDTIME?DAILY DOSE: 100 MILLIGRAM
     Route: 048
  2. RILPIVIRINE [Suspect]
     Active Substance: RILPIVIRINE
     Dosage: EXTENDED-RELEASE INJECTABLE SUSPENSION
     Dates: start: 202403
  3. PAROXETINE [Suspect]
     Active Substance: PAROXETINE
     Indication: Mental disorder
     Dosage: 2.5-0-0 ?DAILY DOSE: 50 MILLIGRAM
     Dates: start: 202411
  4. CYAMEMAZINE [Suspect]
     Active Substance: CYAMEMAZINE
     Indication: Product used for unknown indication
     Dosage: DAILY DOSE: 350 MILLIGRAM
     Dates: start: 20250804
  5. CYAMEMAZINE [Suspect]
     Active Substance: CYAMEMAZINE
     Indication: Product used for unknown indication
     Dosage: 2-2-2-1?DAILY DOSE: 7 DOSAGE FORM
     Dates: end: 202502
  6. VOCABRIA [Concomitant]
     Active Substance: CABOTEGRAVIR SODIUM
     Dosage: EXTENDED-RELEASE INJECTABLE SUSPENSION
     Dates: start: 202403
  7. DESLORATADINE [Concomitant]
     Active Substance: DESLORATADINE
     Dosage: 0-0-1?DAILY DOSE: 5 MILLIGRAM
  8. PRAZEPAM [Concomitant]
     Active Substance: PRAZEPAM
     Route: 048
     Dates: start: 202504
  9. DOXYCYCLINE [Concomitant]
     Active Substance: DOXYCYCLINE
     Indication: Chlamydial infection
     Dates: start: 202411

REACTIONS (2)
  - Enuresis [Not Recovered/Not Resolved]
  - Polyuria [Not Recovered/Not Resolved]

NARRATIVE: CASE EVENT DATE: 20241201
